FAERS Safety Report 13531678 (Version 1)
Quarter: 2017Q2

REPORT INFORMATION
  Report Type: Spontaneous
  Country: US (occurrence: US)
  Receive Date: 20170510
  Receipt Date: 20170510
  Transmission Date: 20170830
  Serious: Yes (Hospitalization, Other)
  Sender: FDA-Public Use
  Company Number: US-TEVA-767014USA

PATIENT
  Sex: Male

DRUGS (3)
  1. NICOTINE. [Suspect]
     Active Substance: NICOTINE
     Indication: TOBACCO ABUSE
     Route: 065
     Dates: start: 1997
  2. CHANTIX [Suspect]
     Active Substance: VARENICLINE TARTRATE
     Indication: TOBACCO ABUSE
     Route: 065
     Dates: start: 2013, end: 2013
  3. ZYBAN [Suspect]
     Active Substance: BUPROPION HYDROCHLORIDE
     Indication: TOBACCO ABUSE
     Route: 065
     Dates: start: 1997

REACTIONS (5)
  - Cardiac failure [Unknown]
  - Arrhythmia [Unknown]
  - Constipation [Recovered/Resolved]
  - Drug ineffective [Unknown]
  - Insomnia [Recovered/Resolved]

NARRATIVE: CASE EVENT DATE: 1997
